FAERS Safety Report 18987668 (Version 2)
Quarter: 2021Q2

REPORT INFORMATION
  Report Type: Report from Study
  Country: US (occurrence: US)
  Receive Date: 20210309
  Receipt Date: 20210408
  Transmission Date: 20210717
  Serious: Yes (Other)
  Sender: FDA-Public Use
  Company Number: US-JNJFOC-20210246116

PATIENT
  Age: 28 Year
  Sex: Female
  Weight: 59.02 kg

DRUGS (4)
  1. SPRAVATO [Suspect]
     Active Substance: ESKETAMINE
     Dates: start: 20210127, end: 20210226
  2. LACTASE [Concomitant]
     Active Substance: LACTASE
     Dates: start: 20200525
  3. SPRAVATO [Suspect]
     Active Substance: ESKETAMINE
     Dates: start: 20210219, end: 20210224
  4. SPRAVATO [Suspect]
     Active Substance: ESKETAMINE
     Indication: DEPRESSION
     Dates: start: 20210127, end: 20210217

REACTIONS (3)
  - Skin laceration [Recovered/Resolved]
  - Sedation [Recovered/Resolved]
  - Rash [Recovered/Resolved]

NARRATIVE: CASE EVENT DATE: 20210224
